FAERS Safety Report 10981374 (Version 2)
Quarter: 2015Q2

REPORT INFORMATION
  Report Type: Spontaneous
  Country: US (occurrence: US)
  Receive Date: 20150402
  Receipt Date: 20150525
  Transmission Date: 20150821
  Serious: No
  Sender: FDA-Public Use
  Company Number: US-JNJFOC-20140915915

PATIENT
  Age: 82 Year
  Sex: Female
  Weight: 81.65 kg

DRUGS (3)
  1. METOPROLOL [Concomitant]
     Active Substance: METOPROLOL
     Indication: HYPERTENSION
     Route: 065
  2. IMODIUM MULTI-SYMPTOM RELIEF [Suspect]
     Active Substance: DIMETHICONE\LOPERAMIDE HYDROCHLORIDE
     Route: 048
  3. IMODIUM MULTI-SYMPTOM RELIEF [Suspect]
     Active Substance: DIMETHICONE\LOPERAMIDE HYDROCHLORIDE
     Indication: DIARRHOEA
     Dosage: NO MORE THAN 4MG A DAY
     Route: 048
     Dates: start: 20140909

REACTIONS (3)
  - Dysphagia [Not Recovered/Not Resolved]
  - Product size issue [Unknown]
  - Drug administration error [Unknown]

NARRATIVE: CASE EVENT DATE: 20140909
